FAERS Safety Report 20444299 (Version 1)
Quarter: 2022Q1

REPORT INFORMATION
  Report Type: Spontaneous
  Country: US (occurrence: US)
  Receive Date: 20220208
  Receipt Date: 20220208
  Transmission Date: 20220423
  Serious: No
  Sender: FDA-Public Use
  Company Number: US-PFIZER INC-2021680880

PATIENT
  Age: 57 Year

DRUGS (2)
  1. SKELAXIN [Suspect]
     Active Substance: METAXALONE
     Dosage: 800 MG, 3X/DAY
  2. METAXALONE [Suspect]
     Active Substance: METAXALONE
     Indication: Myalgia
     Dosage: 800 MG, AS NEEDED (800 MG PO TID AS NEEDED)
     Route: 048

REACTIONS (1)
  - Fibromyalgia [Unknown]
